FAERS Safety Report 7452190-4 (Version None)
Quarter: 2011Q2

REPORT INFORMATION
  Report Type: 
  Country: None (occurrence: None)
  Receive Date: 20110502
  Receipt Date: 20100903
  Transmission Date: 20111010
  Serious: No
  Sender: FDA-Public Use
  Company Number: US-ASTRAZENECA-2010SE41941

PATIENT
  Age: 69 Year
  Sex: Male

DRUGS (5)
  1. NEXIUM [Suspect]
     Indication: GASTROOESOPHAGEAL REFLUX DISEASE
     Route: 048
     Dates: start: 20000101
  2. PRILOSEC [Suspect]
     Indication: GASTROOESOPHAGEAL REFLUX DISEASE
     Route: 048
  3. SYNTHROID [Concomitant]
  4. PRILOSEC OTC [Concomitant]
  5. NEXIUM [Suspect]
     Route: 048
     Dates: end: 20100701

REACTIONS (8)
  - TOOTH DISCOLOURATION [None]
  - DYSGEUSIA [None]
  - CHEST PAIN [None]
  - DRUG DOSE OMISSION [None]
  - DRY MOUTH [None]
  - DRUG INEFFECTIVE [None]
  - GASTROOESOPHAGEAL REFLUX DISEASE [None]
  - COUGH [None]
